FAERS Safety Report 8546519 (Version 3)
Quarter: 2013Q2

REPORT INFORMATION
  Report Type: Report from Study
  Country: JP (occurrence: JP)
  Receive Date: 20120504
  Receipt Date: 20130405
  Transmission Date: 20140414
  Serious: Yes (Death, Other)
  Sender: FDA-Public Use
  Company Number: JP-BAYER-2012-041112

PATIENT
  Age: 79 Year
  Sex: Male
  Weight: 65 kg

DRUGS (10)
  1. NEXAVAR [Suspect]
     Indication: HEPATOCELLULAR CARCINOMA
     Dosage: DAILY DOSE 800 MG
     Route: 048
     Dates: start: 20110610, end: 20110629
  2. AMARYL [Concomitant]
     Dosage: DAILY DOSE 1 MG
     Route: 048
  3. LASIX [Concomitant]
     Dosage: DAILY DOSE 20 MG
     Route: 048
  4. OXYCONTIN [Concomitant]
     Dosage: DAILY DOSE 20 MG
     Route: 048
  5. LOXONIN [Concomitant]
     Dosage: DAILY DOSE 180 MG
     Route: 048
  6. OMEPRAL [Concomitant]
     Dosage: DAILY DOSE 20 MG
     Route: 048
  7. UREPEARL [Concomitant]
     Indication: PROPHYLAXIS
     Dosage: UNK
     Route: 061
  8. MAGMITT [Concomitant]
     Dosage: DAILY DOSE 1500 MG
     Route: 048
  9. DEPAS [Concomitant]
     Dosage: DAILY DOSE .5 MG
     Route: 048
  10. HARNAL [Concomitant]
     Dosage: DAILY DOSE 0.2 MG
     Route: 048
     Dates: start: 20110701

REACTIONS (6)
  - Hepatocellular carcinoma [Fatal]
  - Hepatic function abnormal [Recovering/Resolving]
  - Clavicle fracture [Recovered/Resolved]
  - Hyponatraemia [Not Recovered/Not Resolved]
  - Hypertension [Recovered/Resolved]
  - Hypophosphataemia [Recovered/Resolved]
